FAERS Safety Report 17363035 (Version 3)
Quarter: 2020Q1

REPORT INFORMATION
  Report Type: Spontaneous
  Country: ES (occurrence: ES)
  Receive Date: 20200203
  Receipt Date: 20200211
  Transmission Date: 20200409
  Serious: Yes (Other)
  Sender: FDA-Public Use
  Company Number: ES-PFIZER INC-2020040229

PATIENT
  Age: 55 Year
  Sex: Male

DRUGS (1)
  1. INFLIXIMAB HOSPIRA [Suspect]
     Active Substance: INFLIXIMAB
     Indication: CROHN^S DISEASE
     Dosage: 5 MG/KG, EVERY 6 WEEKS
     Route: 042

REACTIONS (2)
  - Off label use [Unknown]
  - Cutaneous leishmaniasis [Recovering/Resolving]

NARRATIVE: CASE EVENT DATE: 2016
